FAERS Safety Report 22146686 (Version 1)
Quarter: 2023Q1

REPORT INFORMATION
  Report Type: Spontaneous
  Country: IT (occurrence: IT)
  Receive Date: 20230328
  Receipt Date: 20230328
  Transmission Date: 20230417
  Serious: Yes (Other)
  Sender: FDA-Public Use
  Company Number: IT-HALOCARBON LIFE SCIENCES, LLC-20230300009

PATIENT

DRUGS (4)
  1. SEVOFLURANE [Suspect]
     Active Substance: SEVOFLURANE
     Indication: Sedation
  2. REMIFENTANIL [Suspect]
     Active Substance: REMIFENTANIL
     Indication: Sedation
  3. PROPOFOL [Suspect]
     Active Substance: PROPOFOL
     Indication: Sedation
  4. MIDAZOLAM [Suspect]
     Active Substance: MIDAZOLAM
     Indication: Sedation

REACTIONS (1)
  - Diabetes insipidus [Recovered/Resolved]
